FAERS Safety Report 17130120 (Version 1)
Quarter: 2019Q4

REPORT INFORMATION
  Report Type: Spontaneous
  Country: US (occurrence: US)
  Receive Date: 20191209
  Receipt Date: 20191209
  Transmission Date: 20200122
  Serious: Yes (Hospitalization)
  Sender: FDA-Public Use
  Company Number: US-PFIZER INC-2019529136

PATIENT
  Age: 83 Year
  Sex: Male
  Weight: 90.72 kg

DRUGS (1)
  1. VYNDAQEL [Suspect]
     Active Substance: TAFAMIDIS MEGLUMINE
     Indication: AMYLOIDOSIS
     Dosage: 20MG FOUR PILLS ONCE A DAY
     Route: 048
     Dates: start: 2019

REACTIONS (2)
  - Peripheral swelling [Recovering/Resolving]
  - Fluid overload [Recovering/Resolving]
